FAERS Safety Report 5767564-7 (Version None)
Quarter: 2008Q2

REPORT INFORMATION
  Report Type: 
  Country: None (occurrence: None)
  Receive Date: 20080612
  Receipt Date: 20080606
  Transmission Date: 20081010
  Serious: Yes (Other)
  Sender: FDA-Public Use
  Company Number: GB-ROCHE-569009

PATIENT
  Sex: Female
  Weight: 75.8 kg

DRUGS (11)
  1. XENICAL [Suspect]
     Indication: OBESITY
     Route: 048
     Dates: start: 20070228
  2. RAMIPRIL [Concomitant]
     Indication: HYPERTENSION
     Dosage: REPORTED AS RAMAPRIL
     Route: 048
  3. SIMVASTATIN [Concomitant]
     Dosage: REPORTED AS SIMVASTATIM.
     Route: 048
  4. AMIODARONE HCL [Concomitant]
     Indication: ARRHYTHMIA
     Route: 048
  5. BISOPROLOL FUMARATE [Concomitant]
     Indication: DRUG THERAPY
     Route: 048
  6. WARFARIN SODIUM [Concomitant]
     Indication: THROMBOSIS PROPHYLAXIS
     Dosage: DOSE VARIES
     Route: 048
  7. METHOTREXATE [Concomitant]
     Dosage: 6 TABLETS TAKEN ALL IN ONE.
     Route: 048
  8. FOLIC ACID [Concomitant]
     Indication: IMMUNE SYSTEM DISORDER
     Route: 048
  9. ACETAMINOPHEN W/ CODEINE [Concomitant]
     Indication: PAIN
     Route: 048
  10. ACETAMINOPHEN W/ CODEINE [Concomitant]
     Route: 048
  11. FUROSEMIDE [Concomitant]
     Dosage: WATER TABLETS. REPORTED AS FRUSOMIDE.
     Route: 048

REACTIONS (3)
  - ATRIAL FIBRILLATION [None]
  - HEADACHE [None]
  - RHEUMATOID ARTHRITIS [None]
